FAERS Safety Report 23246503 (Version 6)
Quarter: 2024Q2

REPORT INFORMATION
  Report Type: Spontaneous
  Country: US (occurrence: US)
  Receive Date: 20231130
  Receipt Date: 20240424
  Transmission Date: 20240716
  Serious: No
  Sender: FDA-Public Use
  Company Number: US-PFIZER INC-202300377371

PATIENT
  Age: 15 Year
  Sex: Male
  Weight: 45.36 kg

DRUGS (2)
  1. GENOTROPIN [Suspect]
     Active Substance: SOMATROPIN
     Indication: Short stature
     Dosage: 1.4 MG, 1X/DAY, (1.4MG ONCE A DAY BY INJECTION)
     Dates: start: 20230912
  2. GENOTROPIN [Suspect]
     Active Substance: SOMATROPIN
     Dosage: 1.4MG ONCE A DAY BY INJECTION
     Dates: start: 202311

REACTIONS (5)
  - Wrong technique in device usage process [Unknown]
  - Drug administered in wrong device [Unknown]
  - Device leakage [Unknown]
  - Device breakage [Unknown]
  - Device defective [Unknown]

NARRATIVE: CASE EVENT DATE: 20231115
